FAERS Safety Report 9620259 (Version 2)
Quarter: 2013Q4

REPORT INFORMATION
  Report Type: Spontaneous
  Country: US (occurrence: US)
  Receive Date: 20131014
  Receipt Date: 20131014
  Transmission Date: 20140711
  Serious: No
  Sender: FDA-Public Use
  Company Number: US-ALLERGAN-1308395US

PATIENT
  Age: 72 Year
  Sex: Female

DRUGS (12)
  1. ALPHAGAN P [Suspect]
     Indication: INTRAOCULAR PRESSURE INCREASED
     Dosage: 2 GTT, BID
     Dates: end: 20130527
  2. ALPHAGAN P [Suspect]
     Dosage: 2 UNK, UNK
     Dates: end: 20130527
  3. LEVOTHYROXINE [Concomitant]
     Indication: HYPERTHYROIDISM
     Dosage: 0.25 MG, QD
     Route: 048
  4. LEXAPRO [Concomitant]
     Indication: SEASONAL AFFECTIVE DISORDER
     Dosage: 2.5 MG, QD
     Route: 048
  5. GLUCOSAMINE CHONDROITIN/MSM [Concomitant]
     Indication: SUPPLEMENTATION THERAPY
     Dosage: UNK
  6. MVI [Concomitant]
     Indication: SUPPLEMENTATION THERAPY
     Dosage: UNK
  7. CALCIUM [Concomitant]
     Indication: BLOOD CALCIUM
     Dosage: UNK
  8. CALCIUM [Concomitant]
     Indication: SUPPLEMENTATION THERAPY
     Dosage: UNK
  9. VITAMIN D                          /00107901/ [Concomitant]
     Indication: SUPPLEMENTATION THERAPY
     Dosage: UNK
  10. FISH OIL [Concomitant]
     Indication: SUPPLEMENTATION THERAPY
     Dosage: UNK
  11. FLAX SEED [Concomitant]
     Indication: SUPPLEMENTATION THERAPY
     Dosage: UNK
  12. OCUVITE                            /01053801/ [Concomitant]
     Indication: SUPPLEMENTATION THERAPY
     Dosage: UNK

REACTIONS (2)
  - Inappropriate schedule of drug administration [Unknown]
  - Drug ineffective [Unknown]
